FAERS Safety Report 6970644-1 (Version None)
Quarter: 2010Q3

REPORT INFORMATION
  Report Type: 
  Country: None (occurrence: None)
  Receive Date: 20100824
  Receipt Date: 20090824
  Transmission Date: 20110219
  Serious: Yes (Other)
  Sender: FDA-Public Use
  Company Number: 2009259537

PATIENT
  Sex: Female

DRUGS (1)
  1. NORVASC [Suspect]

REACTIONS (4)
  - BLOOD PRESSURE FLUCTUATION [None]
  - DRUG ADMINISTRATION ERROR [None]
  - HYPERTENSION [None]
  - HYPOTENSION [None]
